FAERS Safety Report 13239478 (Version 1)
Quarter: 2017Q1

REPORT INFORMATION
  Report Type: Spontaneous
  Country: US (occurrence: US)
  Receive Date: 20170216
  Receipt Date: 20170216
  Transmission Date: 20170428
  Serious: No
  Sender: FDA-Public Use
  Company Number: US-RELYPSA-RLY2016001496

PATIENT
  Age: 71 Year
  Sex: Female

DRUGS (21)
  1. FERROUS SULFATE. [Concomitant]
     Active Substance: FERROUS SULFATE
  2. SYNTHROID [Concomitant]
     Active Substance: LEVOTHYROXINE SODIUM
  3. CYANOCOBALAMIN. [Concomitant]
     Active Substance: CYANOCOBALAMIN
  4. SODIUM BICARBONATE. [Concomitant]
     Active Substance: SODIUM BICARBONATE
  5. VITAMIN D3 [Concomitant]
     Active Substance: CHOLECALCIFEROL
  6. LIPITOR [Concomitant]
     Active Substance: ATORVASTATIN CALCIUM
  7. TRADJENTA [Concomitant]
     Active Substance: LINAGLIPTIN
  8. CALCITRIOL. [Concomitant]
     Active Substance: CALCITRIOL
  9. FOLIC ACID. [Concomitant]
     Active Substance: FOLIC ACID
  10. VELTASSA [Suspect]
     Active Substance: PATIROMER
     Indication: HYPERKALAEMIA
     Dosage: 8.4 G, QD
     Route: 048
     Dates: start: 201606, end: 201607
  11. DIPHENOXYLATE/ATROPINE [Concomitant]
     Active Substance: ATROPINE\DIPHENOXYLATE
  12. MIDODRINE HCL [Concomitant]
     Active Substance: MIDODRINE HYDROCHLORIDE
  13. PROCRIT [Concomitant]
     Active Substance: ERYTHROPOIETIN
  14. ZEMPLAR [Concomitant]
     Active Substance: PARICALCITOL
  15. GENTAMICIN SULFATE. [Concomitant]
     Active Substance: GENTAMICIN SULFATE
  16. VITAMIN D2 [Concomitant]
     Active Substance: ERGOCALCIFEROL
  17. ASPIRIN. [Concomitant]
     Active Substance: ASPIRIN
  18. MAG OXIDE [Concomitant]
     Active Substance: MAGNESIUM OXIDE
  19. RENVELA [Concomitant]
     Active Substance: SEVELAMER CARBONATE
  20. ESCITALOPRAM OXALATE. [Concomitant]
     Active Substance: ESCITALOPRAM OXALATE
  21. TOPROL XL [Concomitant]
     Active Substance: METOPROLOL SUCCINATE

REACTIONS (1)
  - Product taste abnormal [Recovered/Resolved]

NARRATIVE: CASE EVENT DATE: 201606
